FAERS Safety Report 8449485-4 (Version None)
Quarter: 2012Q2

REPORT INFORMATION
  Report Type: 
  Country: None (occurrence: None)
  Receive Date: 20120619
  Receipt Date: 20120608
  Transmission Date: 20120825
  Serious: Yes (Death)
  Sender: FDA-Public Use
  Company Number: JP-MERCK-1206USA01980

PATIENT
  Sex: Female

DRUGS (1)
  1. CANCIDAS [Suspect]
     Indication: ASPERGILLOSIS
     Route: 041
     Dates: start: 20120501, end: 20120501

REACTIONS (1)
  - RESPIRATORY FAILURE [None]
